FAERS Safety Report 7941819-X (Version None)
Quarter: 2011Q4

REPORT INFORMATION
  Report Type: 
  Country: None (occurrence: None)
  Receive Date: 20111128
  Receipt Date: 20111118
  Transmission Date: 20120403
  Serious: Yes (Hospitalization)
  Sender: FDA-Public Use
  Company Number: NL-MPIJNJ-2011-05452

PATIENT

DRUGS (3)
  1. VELCADE [Suspect]
     Indication: ACUTE LYMPHOCYTIC LEUKAEMIA
     Dosage: 5.6 MG, UNK
     Route: 042
     Dates: start: 20111025, end: 20111104
  2. DEXAMETHASONE [Suspect]
     Indication: ACUTE LYMPHOCYTIC LEUKAEMIA
     Dosage: 33.3 MG, UNK
     Route: 048
     Dates: start: 20111025, end: 20111104
  3. VINCRISTINE [Suspect]
     Indication: ACUTE LYMPHOCYTIC LEUKAEMIA
     Dosage: 1.7 MG, UNK
     Route: 042
     Dates: start: 20111101, end: 20111104

REACTIONS (1)
  - LOCALISED INFECTION [None]
